FAERS Safety Report 10127611 (Version 2)
Quarter: 2014Q2

REPORT INFORMATION
  Report Type: Spontaneous
  Country: US (occurrence: US)
  Receive Date: 20140428
  Receipt Date: 20140603
  Transmission Date: 20141212
  Serious: No
  Sender: FDA-Public Use
  Company Number: US-B.I. PHARMACEUTICALS,INC./RIDGEFIELD-2014-BI-17366BP

PATIENT
  Age: 35 Year
  Sex: Male
  Weight: 83 kg

DRUGS (7)
  1. MICARDIS [Suspect]
     Indication: HYPERTENSION
     Dosage: 40 MG
     Route: 048
     Dates: start: 201301
  2. APIDRA INSULIN [Concomitant]
     Indication: TYPE 1 DIABETES MELLITUS
     Dosage: FORMULATION: SUBCUTANEOUS. STRENGTH: 5 UNITS; DAILY DOSE: 15 UNITS
     Route: 058
  3. LANTUS INSULIN [Concomitant]
     Indication: TYPE 1 DIABETES MELLITUS
     Dosage: FORMULATION: SUBCUTANEOUS. STRENGTH: 35 UNITS; DAILY DOSE: 35 UNITS
     Route: 058
  4. CELEXA [Concomitant]
     Indication: DEPRESSION
     Dosage: 20 MG
     Route: 048
  5. LYRICA [Concomitant]
     Indication: DIABETIC NEUROPATHY
     Dosage: 300 MG
     Route: 048
  6. ASPIRIN [Concomitant]
     Dosage: 81 MG
     Route: 048
  7. CRESTOR [Concomitant]
     Indication: BLOOD CHOLESTEROL INCREASED
     Dosage: 5 MG
     Route: 048

REACTIONS (1)
  - Peripheral swelling [Not Recovered/Not Resolved]
